FAERS Safety Report 4984335-X (Version None)
Quarter: 2006Q2

REPORT INFORMATION
  Report Type: 
  Country: None (occurrence: None)
  Receive Date: 20060420
  Receipt Date: 20060411
  Transmission Date: 20061013
  Serious: Yes (Death)
  Sender: FDA-Public Use
  Company Number: 200603833

PATIENT
  Age: 84 Year
  Sex: Male

DRUGS (1)
  1. ALESION (EPINASTINE) [Suspect]
     Indication: PRURITUS
     Dates: start: 20060308, end: 20060311

REACTIONS (1)
  - JAUNDICE [None]
